FAERS Safety Report 10273115 (Version 2)
Quarter: 2014Q4

REPORT INFORMATION
  Report Type: Spontaneous
  Country: JP (occurrence: JP)
  Receive Date: 20140702
  Receipt Date: 20141113
  Transmission Date: 20150528
  Serious: Yes (Life-Threatening, Hospitalization)
  Sender: FDA-Public Use
  Company Number: JP-BAYER-2014-097060

PATIENT
  Age: 64 Year
  Sex: Male
  Weight: 70 kg

DRUGS (5)
  1. MAGNEVIST [Suspect]
     Active Substance: GADOPENTETATE DIMEGLUMINE
     Indication: DYSPHAGIA
  2. MICARDIS [Concomitant]
     Active Substance: TELMISARTAN
     Indication: HYPERTENSION
     Dosage: DAILY DOSE 40 MG
     Route: 048
     Dates: start: 20080519
  3. FLIVAS [Concomitant]
     Active Substance: NAFTOPIDIL
     Route: 048
  4. MAGNEVIST [Suspect]
     Active Substance: GADOPENTETATE DIMEGLUMINE
     Indication: NUCLEAR MAGNETIC RESONANCE IMAGING BRAIN
     Dosage: 14 ML, ONCE
     Route: 042
     Dates: start: 20140624, end: 20140624
  5. MAGNEVIST [Suspect]
     Active Substance: GADOPENTETATE DIMEGLUMINE
     Indication: BRAIN NEOPLASM MALIGNANT

REACTIONS (9)
  - Sneezing [Recovered/Resolved]
  - Vomiting [Recovered/Resolved]
  - Oxygen saturation immeasurable [Recovered/Resolved]
  - Contrast media reaction [Recovered/Resolved]
  - Hypoaesthesia [Recovered/Resolved]
  - Flushing [Recovered/Resolved]
  - Erythema [Recovered/Resolved]
  - Depressed level of consciousness [Recovered/Resolved]
  - Blood pressure immeasurable [Recovered/Resolved]

NARRATIVE: CASE EVENT DATE: 20140624
